FAERS Safety Report 5107044-5 (Version None)
Quarter: 2006Q3

REPORT INFORMATION
  Report Type: 
  Country: None (occurrence: None)
  Receive Date: 20060913
  Receipt Date: 20060901
  Transmission Date: 20061208
  Serious: Yes (Hospitalization)
  Sender: FDA-Public Use
  Company Number: 2006RR-03645

PATIENT
  Age: 60 Year
  Sex: Male
  Weight: 106 kg

DRUGS (10)
  1. CLARITHROMYCIN [Suspect]
     Dosage: 1000 MG, ORAL
     Route: 048
  2. SIMVASTATIN [Suspect]
     Dosage: 40 MG, ORAL
     Route: 048
  3. DILTIAZEM HYDROCHLORIDE [Suspect]
     Dosage: 90 MG, ORAL
     Route: 048
     Dates: end: 20060810
  4. FLUOXETINE [Suspect]
     Dosage: 20 MG, ORAL
     Route: 048
     Dates: end: 20060810
  5. BISOPROLOL FUMARATE [Concomitant]
  6. ENALAPRIL MALEATE [Concomitant]
  7. ISOSORBIDE MONONITRATE [Concomitant]
  8. ANTITHROMBIN [Concomitant]
  9. ASPIRIN [Concomitant]
  10. ALLOPURINOL [Concomitant]

REACTIONS (4)
  - DRUG INTERACTION [None]
  - INFLUENZA LIKE ILLNESS [None]
  - MYALGIA [None]
  - RHINORRHOEA [None]
